FAERS Safety Report 8356527-3 (Version None)
Quarter: 2012Q2

REPORT INFORMATION
  Report Type: 
  Country: None (occurrence: None)
  Receive Date: 20120514
  Receipt Date: 20120504
  Transmission Date: 20120825
  Serious: Yes (Other)
  Sender: FDA-Public Use
  Company Number: PHHY2012PL036332

PATIENT
  Sex: Male

DRUGS (5)
  1. ANTITHROMBOTIC AGENTS [Concomitant]
  2. ASCORBIC ACID [Concomitant]
  3. ASPIRIN [Concomitant]
  4. LINSEED [Concomitant]
  5. GILENYA [Suspect]
     Indication: MULTIPLE SCLEROSIS
     Route: 048
     Dates: start: 20110603

REACTIONS (41)
  - VENOUS INSUFFICIENCY [None]
  - MALNUTRITION [None]
  - CONTUSION [None]
  - HEADACHE [None]
  - FATIGUE [None]
  - RASH PRURITIC [None]
  - TINNITUS [None]
  - PYREXIA [None]
  - NASOPHARYNGITIS [None]
  - DYSPNOEA [None]
  - CHILLS [None]
  - HYPERAESTHESIA [None]
  - HYPERTONIC BLADDER [None]
  - HYPERTENSION [None]
  - ASTHENIA [None]
  - COMMUNICATION DISORDER [None]
  - SYNCOPE [None]
  - POOR QUALITY SLEEP [None]
  - STRESS [None]
  - FEELING ABNORMAL [None]
  - FEELING HOT [None]
  - BURNING SENSATION [None]
  - DRY THROAT [None]
  - NAUSEA [None]
  - VENOUS STENOSIS [None]
  - DYSGEUSIA [None]
  - OROPHARYNGEAL PAIN [None]
  - ORAL DISCOMFORT [None]
  - NEOPLASM [None]
  - BLOOD PRESSURE DECREASED [None]
  - VOMITING [None]
  - INSOMNIA [None]
  - MEMORY IMPAIRMENT [None]
  - MULTIPLE SCLEROSIS [None]
  - DIZZINESS [None]
  - TREMOR [None]
  - BLEPHAROSPASM [None]
  - INFECTION [None]
  - THROAT IRRITATION [None]
  - EYE PAIN [None]
  - NYSTAGMUS [None]
